FAERS Safety Report 8163840-1 (Version None)
Quarter: 2012Q1

REPORT INFORMATION
  Report Type: 
  Country: None (occurrence: None)
  Receive Date: 20120224
  Receipt Date: 20120221
  Transmission Date: 20120608
  Serious: Yes (Hospitalization)
  Sender: FDA-Public Use
  Company Number: PHEH2012US000543

PATIENT
  Sex: Male

DRUGS (2)
  1. EXJADE [Suspect]
     Indication: MINERAL METABOLISM DISORDER
  2. EXJADE [Suspect]
     Indication: MYELODYSPLASTIC SYNDROME
     Dosage: 1750 MG, DAILY
     Route: 048
     Dates: start: 20111219, end: 20111219

REACTIONS (5)
  - BLOOD COUNT ABNORMAL [None]
  - DIZZINESS [None]
  - PNEUMONIA [None]
  - DIABETIC KETOACIDOSIS [None]
  - DIABETES MELLITUS [None]
